FAERS Safety Report 7539693-9 (Version None)
Quarter: 2011Q2

REPORT INFORMATION
  Report Type: 
  Country: None (occurrence: None)
  Receive Date: 20110610
  Receipt Date: 20110602
  Transmission Date: 20111010
  Serious: Yes (Other)
  Sender: FDA-Public Use
  Company Number: US-ENDO PHARMACEUTICALS INC.-OPER20110121

PATIENT
  Sex: Male

DRUGS (4)
  1. METHADONE HCL [Concomitant]
     Indication: NEUROPATHY PERIPHERAL
  2. OPANA ER [Suspect]
     Indication: PAIN
     Route: 048
     Dates: start: 20090101
  3. OPANA ER [Suspect]
     Indication: NEUROPATHY PERIPHERAL
  4. METHADONE HCL [Concomitant]
     Indication: PAIN
     Dosage: 60 MG

REACTIONS (4)
  - PALPITATIONS [None]
  - DRUG INEFFECTIVE [None]
  - INTENTIONAL DRUG MISUSE [None]
  - WRONG TECHNIQUE IN DRUG USAGE PROCESS [None]
